FAERS Safety Report 20666654 (Version 2)
Quarter: 2022Q4

REPORT INFORMATION
  Report Type: Report from Study
  Country: US (occurrence: US)
  Receive Date: 20220403
  Receipt Date: 20221107
  Transmission Date: 20230112
  Serious: Yes (Hospitalization, Other)
  Sender: FDA-Public Use
  Company Number: US-BRISTOL-MYERS SQUIBB COMPANY-2022-012390

PATIENT
  Age: 60 Year
  Sex: Male
  Weight: 114.75 kg

DRUGS (2)
  1. REVLIMID [Suspect]
     Active Substance: LENALIDOMIDE
     Indication: Plasma cell myeloma
     Dosage: FREQUENCY: 21 DAYS
     Route: 048
     Dates: start: 20200409
  2. REVLIMID [Suspect]
     Active Substance: LENALIDOMIDE
     Dosage: TAKE 1 CAPSULE ONCE DAILY FOR 21 DAYS AND 7 DAYS OFF
     Route: 065
     Dates: start: 20200504

REACTIONS (2)
  - Hospitalisation [Unknown]
  - Neuropathy peripheral [Unknown]
